FAERS Safety Report 6290766-0 (Version None)
Quarter: 2009Q3

REPORT INFORMATION
  Report Type: 
  Country: None (occurrence: None)
  Receive Date: 20090730
  Receipt Date: 20090727
  Transmission Date: 20100115
  Serious: Yes (Death, Hospitalization, Other)
  Sender: FDA-Public Use
  Company Number: PHHY2009BR31164

PATIENT
  Sex: Female

DRUGS (9)
  1. DIOVAN [Suspect]
     Indication: HYPERTENSION
     Dosage: 1 TABLET (160 MG) A DAY
     Route: 048
     Dates: start: 20070101
  2. DILACORON [Concomitant]
     Indication: ARRHYTHMIA
     Dosage: UNK
     Dates: end: 20070101
  3. LEXOTAN [Concomitant]
     Indication: SLEEP DISORDER
     Dosage: 1 TABLET (3 MG) A DAY
     Route: 048
     Dates: start: 19940101
  4. ASPIRIN [Concomitant]
     Indication: ISCHAEMIA
     Dosage: 1 DF, QD AT LUNCH
     Route: 048
     Dates: start: 20010101
  5. EUTHYROX [Concomitant]
     Indication: THYROID DISORDER
     Dosage: 1 DF, QD IN THE MORNING
     Route: 048
     Dates: start: 20081001
  6. ROXFLAN [Concomitant]
     Indication: CARDIAC DISORDER
     Dosage: HALF TABLET (5 MG) A DAY
     Route: 048
     Dates: start: 20081001
  7. AMIODARONE HYDROCHLORIDE [Concomitant]
     Indication: ARRHYTHMIA
     Dosage: 1 TABLET (200 MG) A DAY
     Route: 048
     Dates: start: 20081001
  8. DIGOXIN [Concomitant]
     Indication: CARDIAC DISORDER
     Dosage: HALF TABLET (0.25 MG) A DAY
     Route: 048
     Dates: start: 20081001
  9. ALDAZIDA [Concomitant]
     Indication: CARDIAC DISORDER
     Dosage: 1 DF, QD IN THE MORNING
     Route: 048
     Dates: start: 20090501

REACTIONS (10)
  - AORTIC ANEURYSM [None]
  - ARTERIOSCLEROSIS CORONARY ARTERY [None]
  - CARDIAC FAILURE [None]
  - ISCHAEMIA [None]
  - MYOCARDIAL FIBROSIS [None]
  - PNEUMONIA [None]
  - PULMONARY OEDEMA [None]
  - PYREXIA [None]
  - SKIN DISCOLOURATION [None]
  - URINARY TRACT INFECTION [None]
